FAERS Safety Report 7355035-6 (Version None)
Quarter: 2011Q1

REPORT INFORMATION
  Report Type: 
  Country: None (occurrence: None)
  Receive Date: 20110316
  Receipt Date: 20110304
  Transmission Date: 20110831
  Serious: Yes (Other)
  Sender: FDA-Public Use
  Company Number: GB-SANOFI-AVENTIS-2011SA013705

PATIENT
  Age: 52 Year
  Sex: Female
  Weight: 92 kg

DRUGS (4)
  1. PERINDOPRIL ERBUMINE [Concomitant]
     Route: 048
     Dates: start: 20100901
  2. BISOPROLOL [Concomitant]
     Indication: ATRIAL FIBRILLATION
     Route: 048
     Dates: start: 20100901
  3. WARFARIN [Concomitant]
     Indication: ATRIAL FIBRILLATION
     Route: 048
     Dates: start: 20100901
  4. MULTAQ [Suspect]
     Indication: ATRIAL FIBRILLATION
     Route: 048
     Dates: start: 20101125

REACTIONS (2)
  - DIABETES MELLITUS [None]
  - DIABETIC RETINOPATHY [None]
